FAERS Safety Report 20197948 (Version 1)
Quarter: 2021Q4

REPORT INFORMATION
  Report Type: Spontaneous
  Country: US (occurrence: US)
  Receive Date: 20211217
  Receipt Date: 20211217
  Transmission Date: 20220303
  Serious: No
  Sender: FDA-Public Use
  Company Number: US-ALLERGAN-2105223US

PATIENT
  Age: 87 Year
  Sex: Female

DRUGS (1)
  1. PREDNISOLONE ACETATE [Suspect]
     Active Substance: PREDNISOLONE ACETATE
     Indication: Preoperative care
     Dosage: 1 GTT, BID
     Route: 047
     Dates: start: 20210130, end: 20210130

REACTIONS (3)
  - Swelling face [Recovered/Resolved]
  - Cough [Recovered/Resolved]
  - Contraindicated product administered [Unknown]

NARRATIVE: CASE EVENT DATE: 20210130
